FAERS Safety Report 13936092 (Version 1)
Quarter: 2017Q3

REPORT INFORMATION
  Report Type: Spontaneous
  Country: FR (occurrence: FR)
  Receive Date: 20170905
  Receipt Date: 20170905
  Transmission Date: 20171127
  Serious: Yes (Other)
  Sender: FDA-Public Use
  Company Number: FR-JNJFOC-20170716896

PATIENT
  Age: 48 Year
  Sex: Female
  Weight: 56 kg

DRUGS (3)
  1. STELARA [Suspect]
     Active Substance: USTEKINUMAB
     Indication: CROHN^S DISEASE
     Route: 042
     Dates: start: 20170519
  2. STELARA [Suspect]
     Active Substance: USTEKINUMAB
     Indication: SPINAL OSTEOARTHRITIS
     Route: 042
     Dates: start: 20170519
  3. AVLOCARDYL [Concomitant]
     Active Substance: PROPRANOLOL HYDROCHLORIDE
     Route: 065

REACTIONS (8)
  - Migraine [Unknown]
  - Arthralgia [Recovered/Resolved]
  - Oropharyngeal pain [Unknown]
  - Rash [Recovered/Resolved]
  - Prinzmetal angina [Recovered/Resolved]
  - Myalgia [Recovered/Resolved]
  - Alopecia [Unknown]
  - Madarosis [Unknown]

NARRATIVE: CASE EVENT DATE: 2017
